FAERS Safety Report 11334072 (Version 2)
Quarter: 2015Q3

REPORT INFORMATION
  Report Type: Report from Study
  Country: JP (occurrence: JP)
  Receive Date: 20150803
  Receipt Date: 20150921
  Transmission Date: 20151125
  Serious: Yes (Death, Hospitalization)
  Sender: FDA-Public Use
  Company Number: JP-EISAI MEDICAL RESEARCH-EC-2015-009171

PATIENT
  Age: 71 Year
  Sex: Female
  Weight: 48 kg

DRUGS (18)
  1. HALAVEN [Suspect]
     Active Substance: ERIBULIN MESYLATE
     Indication: BREAST CANCER RECURRENT
     Route: 041
     Dates: start: 20150130, end: 20150130
  2. CEFAZOLIN SODIUM. [Concomitant]
     Active Substance: CEFAZOLIN SODIUM
  3. ZYPREXA [Concomitant]
     Active Substance: OLANZAPINE
  4. PANTOSIN [Concomitant]
     Active Substance: PANTETHINE
  5. PURSENNID [Concomitant]
     Active Substance: SENNOSIDES A AND B
  6. BROTIZOLAM [Concomitant]
     Active Substance: BROTIZOLAM
  7. ISOBIDE [Concomitant]
     Active Substance: ISOSORBIDE
  8. HALAVEN [Suspect]
     Active Substance: ERIBULIN MESYLATE
     Route: 041
     Dates: start: 20150303, end: 20150303
  9. GLYCEREB [Concomitant]
  10. TAKEPRON [Concomitant]
     Active Substance: LANSOPRAZOLE
  11. MAGNESIUM OXIDE. [Concomitant]
     Active Substance: MAGNESIUM OXIDE
  12. SAHNE [Concomitant]
  13. BAKTAR [Concomitant]
     Active Substance: SULFAMETHOXAZOLE\TRIMETHOPRIM
  14. DEXART [Concomitant]
     Active Substance: DEXAMETHASONE SODIUM PHOSPHATE
  15. DECADRON [Concomitant]
     Active Substance: DEXAMETHASONE
  16. LYRICA [Concomitant]
     Active Substance: PREGABALIN
  17. FERROMIA [Concomitant]
     Active Substance: FERROUS CITRATE
  18. ADALAT [Concomitant]
     Active Substance: NIFEDIPINE

REACTIONS (3)
  - Respiratory distress [Not Recovered/Not Resolved]
  - Malaise [Not Recovered/Not Resolved]
  - Malignant neoplasm progression [Fatal]

NARRATIVE: CASE EVENT DATE: 20150322
